FAERS Safety Report 9046446 (Version 1)
Quarter: 2013Q1

REPORT INFORMATION
  Report Type: Spontaneous
  Country: US (occurrence: US)
  Receive Date: 20130130
  Receipt Date: 20130130
  Transmission Date: 20140127
  Serious: No
  Sender: FDA-Public Use
  Company Number: US-ABBOTT-12P-163-0973184-00

PATIENT
  Age: 25 None
  Sex: Female
  Weight: 65.83 kg

DRUGS (7)
  1. HUMIRA 40 MG/0.8 ML PEN [Suspect]
     Indication: CROHN^S DISEASE
     Dates: start: 20120808, end: 20120808
  2. HUMIRA 40 MG/0.8 ML PEN [Suspect]
     Dates: start: 20120823, end: 20120823
  3. ASACOL [Concomitant]
     Indication: CROHN^S DISEASE
  4. DOXEPIN [Concomitant]
     Indication: ANXIETY
  5. UNKNOWN MEDICATION [Concomitant]
     Indication: MOTION SICKNESS
  6. BIOTIN [Concomitant]
     Indication: ALOPECIA
  7. MULTIVITAMIN [Concomitant]
     Indication: VITAMIN SUPPLEMENTATION

REACTIONS (8)
  - Pyrexia [Recovered/Resolved]
  - Injection site pain [Not Recovered/Not Resolved]
  - Nausea [Recovered/Resolved]
  - Vomiting [Recovered/Resolved]
  - Hot flush [Recovered/Resolved]
  - Skin disorder [Recovered/Resolved]
  - Injection site induration [Unknown]
  - Device malfunction [Unknown]
